FAERS Safety Report 9132544 (Version 2)
Quarter: 2013Q3

REPORT INFORMATION
  Report Type: Spontaneous
  Country: JP (occurrence: JP)
  Receive Date: 20130301
  Receipt Date: 20130812
  Transmission Date: 20140515
  Serious: Yes (Life-Threatening, Hospitalization)
  Sender: FDA-Public Use
  Company Number: JP-CUBIST PHARMACEUTICAL, INC.-2013CBST000160

PATIENT
  Age: 17 Year
  Sex: Female
  Weight: 50 kg

DRUGS (10)
  1. CUBICIN [Suspect]
     Indication: ARTHRITIS BACTERIAL
     Dosage: 6 MG/KG, QD
     Route: 041
     Dates: start: 20130225, end: 20130225
  2. CUBICIN [Suspect]
     Indication: OFF LABEL USE
     Dosage: 300 MG, QD
     Route: 041
     Dates: start: 20130225, end: 20130225
  3. ALL OTHER THERAPEUTIC PRODUCTS [Suspect]
     Indication: PRODUCT USED FOR UNKNOWN INDICATION
     Dosage: UNK UNK, UNK
  4. ZOSYN [Concomitant]
     Indication: ARTHRITIS BACTERIAL
     Dosage: 4.5 G, TID
     Route: 041
     Dates: start: 20130225
  5. ISOTONIC SODIUM CHLORIDE SOLUTION [Concomitant]
     Indication: ARTHRITIS BACTERIAL
     Dosage: 100 ML, BID
     Route: 041
     Dates: start: 20130225
  6. ISOTONIC SODIUM CHLORIDE SOLUTION [Concomitant]
     Dosage: 100 ML, BID
     Route: 041
     Dates: start: 20130224, end: 20130224
  7. LACTEC                             /00490001/ [Concomitant]
     Indication: FLUID REPLACEMENT
     Dosage: 500 ML, QD
     Route: 041
     Dates: start: 20130224, end: 20130224
  8. CEFEPIME                           /01263802/ [Concomitant]
     Indication: ARTHRITIS BACTERIAL
     Dosage: 1 G, BID
     Route: 041
     Dates: start: 20130224, end: 20130224
  9. BFLUID [Concomitant]
     Indication: FLUID REPLACEMENT
     Dosage: 500 ML, QD
     Route: 041
     Dates: start: 20130224, end: 20130224
  10. SOLITA-T3 [Concomitant]
     Indication: FLUID REPLACEMENT
     Dosage: 1440 ML, QD
     Route: 041
     Dates: start: 20130225

REACTIONS (4)
  - Anaphylactic shock [Recovered/Resolved]
  - Cough [Recovered/Resolved]
  - Wheezing [Recovered/Resolved]
  - Pruritus [Recovered/Resolved]
